FAERS Safety Report 4611360-0 (Version None)
Quarter: 2005Q1

REPORT INFORMATION
  Report Type: 
  Country: None (occurrence: None)
  Receive Date: 20050317
  Receipt Date: 20050307
  Transmission Date: 20050727
  Serious: Yes (Hospitalization)
  Sender: FDA-Public Use
  Company Number: FR-BRISTOL-MYERS SQUIBB COMPANY-12891941

PATIENT
  Age: 85 Year
  Sex: Female

DRUGS (10)
  1. LOPRIL [Suspect]
     Indication: HYPERTENSION
     Route: 048
     Dates: end: 20050117
  2. ATROVENT [Suspect]
     Indication: ACUTE RESPIRATORY DISTRESS SYNDROME
     Route: 055
     Dates: end: 20050121
  3. BRICANYL [Suspect]
     Indication: ACUTE RESPIRATORY DISTRESS SYNDROME
     Route: 055
     Dates: end: 20050121
  4. CORTANCYL [Concomitant]
  5. MONO-TILDIEM [Concomitant]
  6. VASTAREL [Concomitant]
  7. SURBRONC [Concomitant]
  8. NEURONTIN [Concomitant]
  9. DIAMICRON [Concomitant]
  10. STABLON [Concomitant]

REACTIONS (4)
  - ACUTE RESPIRATORY DISTRESS SYNDROME [None]
  - BRONCHOSPASM [None]
  - CARDIOPULMONARY FAILURE [None]
  - DYSPHAGIA [None]
